FAERS Safety Report 7576038-2 (Version None)
Quarter: 2011Q2

REPORT INFORMATION
  Report Type: 
  Country: None (occurrence: None)
  Receive Date: 20110628
  Receipt Date: 20110128
  Transmission Date: 20111010
  Serious: Yes (Hospitalization, Other)
  Sender: FDA-Public Use
  Company Number: US-BAYER-201034066NA

PATIENT
  Age: 20 Year
  Sex: Female
  Weight: 106.58 kg

DRUGS (9)
  1. YASMIN [Suspect]
     Indication: PRODUCT USED FOR UNKNOWN INDICATION
     Route: 048
  2. EFFEXOR [Concomitant]
  3. SEROQUEL [Concomitant]
  4. DOXYCYCLINE [Concomitant]
     Dosage: UNK
  5. KLONOPIN [Concomitant]
  6. TRIPHASIL-21 [Concomitant]
     Dosage: UNK
     Dates: start: 20080227
  7. LAMICTAL [Concomitant]
  8. LEVAQUIN [Concomitant]
  9. YAZ [Suspect]
     Indication: PRODUCT USED FOR UNKNOWN INDICATION
     Route: 048

REACTIONS (4)
  - CHOLELITHIASIS [None]
  - INJURY [None]
  - CHOLECYSTITIS CHRONIC [None]
  - CHOLECYSTECTOMY [None]
